FAERS Safety Report 9469840 (Version 1)
Quarter: 2013Q3

REPORT INFORMATION
  Report Type: Spontaneous
  Country: BR (occurrence: BR)
  Receive Date: 20130822
  Receipt Date: 20130822
  Transmission Date: 20140515
  Serious: Yes (Other)
  Sender: FDA-Public Use
  Company Number: BR-SANOFI-AVENTIS-2013SA082085

PATIENT
  Sex: Male
  Weight: 57 kg

DRUGS (8)
  1. LANTUS [Suspect]
     Indication: DIABETES MELLITUS
     Route: 058
     Dates: start: 2007
  2. AUTOPEN 24 [Concomitant]
     Indication: DEVICE THERAPY
  3. TYLENOL [Concomitant]
     Indication: PAIN
     Dosage: STRENGTH:750MG
     Route: 048
  4. TYLENOL [Concomitant]
     Indication: RHEUMATOID ARTHRITIS
     Dosage: STRENGTH:750MG
     Route: 048
  5. GABAPENTIN [Concomitant]
     Indication: DIABETIC NEUROPATHY
     Route: 048
  6. BENERVA [Concomitant]
     Route: 048
  7. METHOTREXATE [Concomitant]
     Indication: RHEUMATOID ARTHRITIS
     Route: 048
  8. PREDNISONE [Concomitant]
     Indication: RENAL DISORDER
     Route: 048

REACTIONS (3)
  - Hyperthyroidism [Unknown]
  - Diabetic neuropathy [Unknown]
  - Burning sensation [Not Recovered/Not Resolved]
